FAERS Safety Report 6260877-4 (Version None)
Quarter: 2009Q3

REPORT INFORMATION
  Report Type: 
  Country: None (occurrence: None)
  Receive Date: 20090707
  Receipt Date: 20090626
  Transmission Date: 20100115
  Serious: Yes (Other)
  Sender: FDA-Public Use
  Company Number: GXKR2009GB07379

PATIENT
  Age: 56 Year
  Sex: Male

DRUGS (8)
  1. PRAVASTATIN               (PRAVASTATIN SODIUM) UNKNOWN [Suspect]
     Dosage: 10 MG, QD, ORAL; 20 MG, BID
     Route: 048
     Dates: start: 20080201, end: 20080305
  2. PRAVASTATIN               (PRAVASTATIN SODIUM) UNKNOWN [Suspect]
     Dosage: 10 MG, QD, ORAL; 20 MG, BID
     Route: 048
     Dates: start: 20010307
  3. SIMVASTATIN [Suspect]
     Dosage: 10 MG, QD, ORAL; 75 MG, QD
     Route: 048
     Dates: start: 20071207, end: 20080201
  4. SIMVASTATIN [Suspect]
     Dosage: 10 MG, QD, ORAL; 75 MG, QD
     Route: 048
     Dates: start: 20080118
  5. EZETIMIBE [Suspect]
     Dosage: 10 MG, QD, ORAL
     Route: 048
     Dates: start: 20080305, end: 20090107
  6. SILDENAFIL CITRATE [Suspect]
     Indication: ERECTILE DYSFUNCTION
     Dosage: 100 MG, ORAL
     Route: 048
     Dates: start: 20010307
  7. ASPIRIN [Concomitant]
  8. TROSPIUM CHLORIDE (TROSPIUM CHLORIDE) [Concomitant]

REACTIONS (3)
  - DRUG INEFFECTIVE [None]
  - DRUG INTERACTION [None]
  - ERECTILE DYSFUNCTION [None]
